FAERS Safety Report 12942789 (Version 1)
Quarter: 2016Q4

REPORT INFORMATION
  Report Type: Spontaneous
  Country: US (occurrence: US)
  Receive Date: 20161115
  Receipt Date: 20161115
  Transmission Date: 20170207
  Serious: Yes (Hospitalization, Other)
  Sender: FDA-Public Use
  Company Number: US-ELI_LILLY_AND_COMPANY-US201607009498

PATIENT
  Sex: Female

DRUGS (4)
  1. CYMBALTA [Suspect]
     Active Substance: DULOXETINE HYDROCHLORIDE
     Indication: PRODUCT USED FOR UNKNOWN INDICATION
     Dosage: 20 MG, UNKNOWN
     Route: 065
     Dates: start: 20100621
  2. CYMBALTA [Suspect]
     Active Substance: DULOXETINE HYDROCHLORIDE
     Dosage: 30 MG, QD
     Route: 065
     Dates: end: 20111218
  3. CYMBALTA [Suspect]
     Active Substance: DULOXETINE HYDROCHLORIDE
     Dosage: 60 MG, UNKNOWN
     Route: 065
     Dates: start: 20101201
  4. CYMBALTA [Suspect]
     Active Substance: DULOXETINE HYDROCHLORIDE
     Dosage: 120 MG, QD
     Route: 065

REACTIONS (13)
  - Drug withdrawal syndrome [Unknown]
  - Tinnitus [Unknown]
  - Paraesthesia [Unknown]
  - Dizziness [Unknown]
  - Anxiety [Unknown]
  - Irritability [Unknown]
  - Suicidal ideation [Unknown]
  - Affect lability [Unknown]
  - Confusional state [Unknown]
  - Dysphoria [Unknown]
  - Hyperhidrosis [Unknown]
  - Agitation [Unknown]
  - Tremor [Unknown]
